FAERS Safety Report 26060994 (Version 1)
Quarter: 2025Q4

REPORT INFORMATION
  Report Type: Spontaneous
  Country: EU (occurrence: EU)
  Receive Date: 20251118
  Receipt Date: 20251118
  Transmission Date: 20260118
  Serious: Yes (Hospitalization)
  Sender: ELI LILLY AND COMPANY
  Company Number: None

PATIENT
  Age: 63 Year
  Sex: Female
  Weight: 60 kg

DRUGS (1)
  1. ABEMACICLIB [Suspect]
     Active Substance: ABEMACICLIB
     Indication: Breast cancer
     Dosage: 200 MG, UNKNOWN
     Route: 048
     Dates: start: 20221108, end: 20250312

REACTIONS (2)
  - Epistaxis [Recovering/Resolving]
  - Alveolitis [Recovering/Resolving]

NARRATIVE: CASE EVENT DATE: 20250401
